FAERS Safety Report 18320008 (Version 1)
Quarter: 2020Q3

REPORT INFORMATION
  Report Type: Spontaneous
  Country: US (occurrence: US)
  Receive Date: 20200929
  Receipt Date: 20200929
  Transmission Date: 20201103
  Serious: No
  Sender: FDA-Public Use
  Company Number: NVSC2020US260817

PATIENT
  Sex: Female

DRUGS (1)
  1. ILARIS [Suspect]
     Active Substance: CANAKINUMAB
     Indication: PRODUCT USED FOR UNKNOWN INDICATION
     Dosage: 300 MG, Q4 WEEKS
     Route: 065

REACTIONS (7)
  - Muscular weakness [Unknown]
  - Hypoaesthesia [Unknown]
  - Lethargy [Unknown]
  - Abdominal distension [Unknown]
  - Cough [Unknown]
  - Vomiting [Unknown]
  - Frequent bowel movements [Unknown]
